FAERS Safety Report 8077562-9 (Version None)
Quarter: 2012Q1

REPORT INFORMATION
  Report Type: 
  Country: None (occurrence: None)
  Receive Date: 20120123
  Receipt Date: 20120112
  Transmission Date: 20120608
  Serious: Yes (Other)
  Sender: FDA-Public Use
  Company Number: AUR-APL-2012-05996

PATIENT
  Age: 8 Year
  Sex: Male

DRUGS (4)
  1. VALPROIC ACID [Concomitant]
     Indication: PARTIAL SEIZURES
  2. LAMOTRIGINE [Suspect]
     Indication: EPILEPSY
  3. CARBAMAZEPINE [Suspect]
     Indication: PARTIAL SEIZURES
  4. LEVETIRACETAM [Suspect]
     Indication: EPILEPSY

REACTIONS (10)
  - ANGER [None]
  - PETIT MAL EPILEPSY [None]
  - COGNITIVE DISORDER [None]
  - FATIGUE [None]
  - RESTLESSNESS [None]
  - ATAXIA [None]
  - DRUG INEFFECTIVE [None]
  - ABNORMAL BEHAVIOUR [None]
  - MOTOR DYSFUNCTION [None]
  - EDUCATIONAL PROBLEM [None]
